FAERS Safety Report 5815084-3 (Version None)
Quarter: 2008Q3

REPORT INFORMATION
  Report Type: 
  Country: None (occurrence: None)
  Receive Date: 20080718
  Receipt Date: 20080715
  Transmission Date: 20090109
  Serious: Yes (Death, Life-Threatening, Hospitalization, Disabling)
  Sender: FDA-Public Use
  Company Number: US-MERCK-0807USA02670

PATIENT
  Age: 76 Year
  Sex: Female

DRUGS (8)
  1. IVEMEND [Suspect]
     Indication: PROPHYLAXIS OF NAUSEA AND VOMITING
     Route: 041
     Dates: start: 20080414
  2. IVEMEND [Suspect]
     Route: 041
     Dates: start: 20080428
  3. IVEMEND [Suspect]
     Route: 041
     Dates: start: 20080512
  4. IVEMEND [Suspect]
     Indication: BREAST CANCER
     Route: 041
     Dates: start: 20080414
  5. IVEMEND [Suspect]
     Route: 041
     Dates: start: 20080428
  6. IVEMEND [Suspect]
     Route: 041
     Dates: start: 20080512
  7. CYTOXAN [Concomitant]
     Indication: BREAST CANCER
     Route: 065
  8. TAXOTERE [Concomitant]
     Indication: BREAST CANCER
     Route: 065

REACTIONS (1)
  - INTERSTITIAL LUNG DISEASE [None]
